FAERS Safety Report 6480888-3 (Version None)
Quarter: 2009Q4

REPORT INFORMATION
  Report Type: 
  Country: None (occurrence: None)
  Receive Date: 20091208
  Receipt Date: 20091023
  Transmission Date: 20100525
  Serious: Yes (Other)
  Sender: FDA-Public Use
  Company Number: US-SANOFI-AVENTIS-200916990US

PATIENT
  Age: 71 Year
  Sex: Female

DRUGS (2)
  1. SOLOSTAR [Suspect]
     Dates: start: 20060101
  2. LANTUS [Suspect]
     Dosage: DOSE AS USED: 20-30 UNITS
     Route: 058
     Dates: start: 20060101

REACTIONS (2)
  - BLOOD GLUCOSE FLUCTUATION [None]
  - DEVICE MALFUNCTION [None]
